FAERS Safety Report 9875108 (Version 1)
Quarter: 2014Q1

REPORT INFORMATION
  Report Type: Spontaneous
  Country: US (occurrence: None)
  Receive Date: 20140204
  Receipt Date: 20140204
  Transmission Date: 20141002
  Serious: Yes (Death, Hospitalization)
  Sender: FDA-Public Use
  Company Number: IMP_06992_2014

PATIENT
  Age: 28 Year
  Sex: 0

DRUGS (10)
  1. CLONIDINE 0.1 MG [Suspect]
     Indication: PRODUCT USED FOR UNKNOWN INDICATION
     Dates: start: 2012, end: 2012
  2. FLECAINIDE [Suspect]
     Indication: PRODUCT USED FOR UNKNOWN INDICATION
     Route: 048
     Dates: start: 2012, end: 2012
  3. FLUOXETINE [Suspect]
     Indication: PRODUCT USED FOR UNKNOWN INDICATION
     Route: 048
     Dates: start: 2012, end: 2012
  4. CLONAZEPAM 0.5 MG TABLET [Suspect]
     Indication: PRODUCT USED FOR UNKNOWN INDICATION
     Route: 048
     Dates: start: 2012, end: 2012
  5. LISINOPRIL 40 MG LUPIN PHARMACE [Suspect]
     Indication: PRODUCT USED FOR UNKNOWN INDICATION
     Dates: start: 2012, end: 2012
  6. FUROSEMIDE [Suspect]
     Indication: PRODUCT USED FOR UNKNOWN INDICATION
     Route: 048
     Dates: start: 2012, end: 2012
  7. POTASSIUM CHLORIDE [Suspect]
     Indication: PRODUCT USED FOR UNKNOWN INDICATION
  8. COCAINE [Suspect]
     Indication: PRODUCT USED FOR UNKNOWN INDICATION
  9. ETHANOL [Suspect]
     Indication: PRODUCT USED FOR UNKNOWN INDICATION
  10. LORAZEPAM [Suspect]
     Indication: PRODUCT USED FOR UNKNOWN INDICATION
     Dates: start: 2012

REACTIONS (14)
  - Completed suicide [None]
  - Unresponsive to stimuli [None]
  - Coma [None]
  - Cardiac arrest [None]
  - Status epilepticus [None]
  - Posturing [None]
  - Cardiogenic shock [None]
  - Arrhythmia [None]
  - Compartment syndrome [None]
  - Blood glucose increased [None]
  - Brain death [None]
  - Toxicity to various agents [None]
  - Exposure via ingestion [None]
  - Blood pH decreased [None]
